FAERS Safety Report 13071947 (Version 1)
Quarter: 2016Q4

REPORT INFORMATION
  Report Type: Spontaneous
  Country: US (occurrence: US)
  Receive Date: 20161229
  Receipt Date: 20161229
  Transmission Date: 20170207
  Serious: No
  Sender: FDA-Public Use
  Company Number: US-BAYER-2016-246328

PATIENT
  Sex: Female
  Weight: 68.03 kg

DRUGS (4)
  1. LYRICA [Concomitant]
     Active Substance: PREGABALIN
  2. MS CONTIN [Concomitant]
     Active Substance: MORPHINE SULFATE
     Dosage: 30 MG, TID
  3. VENLAFAXINE [Concomitant]
     Active Substance: VENLAFAXINE HYDROCHLORIDE
  4. MIRALAX [Suspect]
     Active Substance: POLYETHYLENE GLYCOL 3350
     Indication: GASTROINTESTINAL DISORDER
     Dosage: 0.5 DF, QD

REACTIONS (1)
  - Product use issue [Unknown]
